FAERS Safety Report 23642441 (Version 1)
Quarter: 2024Q1

REPORT INFORMATION
  Report Type: Spontaneous
  Country: US (occurrence: US)
  Receive Date: 20240318
  Receipt Date: 20240318
  Transmission Date: 20240410
  Serious: Yes (Other)
  Sender: FDA-Public Use
  Company Number: US-AUROBINDO-AUR-APL-2024-011495

PATIENT
  Age: 16 Year
  Sex: Female

DRUGS (6)
  1. FAMOTIDINE [Suspect]
     Active Substance: FAMOTIDINE
     Indication: Product used for unknown indication
     Dosage: UNK UNK, 3 TIMES A DAY
     Route: 065
  2. THIAMINE [Suspect]
     Active Substance: THIAMINE
     Indication: Wernicke-Korsakoff syndrome
     Dosage: 100 MILLIGRAM(INITIAL DOSE)
     Route: 042
  3. THIAMINE [Suspect]
     Active Substance: THIAMINE
     Dosage: 500 MILLIGRAM, TWO TIMES A DAY(FOR 3 DAYS)
     Route: 042
  4. THIAMINE [Suspect]
     Active Substance: THIAMINE
     Dosage: 250 MILLIGRAM( FOR 5 DAYS)
     Route: 042
  5. ONDANSETRON [Suspect]
     Active Substance: ONDANSETRON
     Indication: Product used for unknown indication
     Dosage: UNK UNK, 3 TIMES A DAY
     Route: 065
  6. DOXYLAMINE SUCCINATE AND PYRIDOXINE HYDROCHLORIDE [Suspect]
     Active Substance: DOXYLAMINE SUCCINATE\PYRIDOXINE HYDROCHLORIDE
     Indication: Product used for unknown indication
     Dosage: UNK, 3 TIMES A DAY
     Route: 065

REACTIONS (4)
  - Ophthalmoplegia [Recovered/Resolved]
  - Strabismus [Recovered/Resolved]
  - Gait disturbance [Recovering/Resolving]
  - Exposure during pregnancy [Unknown]
